FAERS Safety Report 15213964 (Version 2)
Quarter: 2018Q4

REPORT INFORMATION
  Report Type: Spontaneous
  Country: US (occurrence: US)
  Receive Date: 20180730
  Receipt Date: 20181005
  Transmission Date: 20190204
  Serious: Yes (Other)
  Sender: FDA-Public Use
  Company Number: US-SA-2018SA205088

PATIENT
  Age: 56 Year
  Sex: Female
  Weight: 112 kg

DRUGS (6)
  1. CYCLOPHOSPHAMIDE. [Concomitant]
     Active Substance: CYCLOPHOSPHAMIDE
     Dosage: UNK UNK, UNK
     Route: 065
  2. TAXOTERE [Suspect]
     Active Substance: DOCETAXEL
     Dosage: 150 TO 173 MG, Q3W
     Route: 042
     Dates: start: 20110920, end: 20110920
  3. CLONIDINE. [Concomitant]
     Active Substance: CLONIDINE
     Dosage: UNK UNK, UNK
     Route: 065
  4. DEXAMETHASONE. [Concomitant]
     Active Substance: DEXAMETHASONE
     Dosage: UNK UNK, UNK
     Route: 065
  5. TAXOTERE [Suspect]
     Active Substance: DOCETAXEL
     Indication: BREAST CANCER
     Dosage: 150 TO 173 MG, Q3W
     Route: 042
     Dates: start: 20110719, end: 20110719
  6. ZOFRAN [ONDANSETRON HYDROCHLORIDE] [Concomitant]
     Dosage: UNK UNK, UNK
     Route: 065

REACTIONS (2)
  - Alopecia [Recovering/Resolving]
  - Psychological trauma [Unknown]

NARRATIVE: CASE EVENT DATE: 201107
